FAERS Safety Report 4309652-8 (Version None)
Quarter: 2004Q1

REPORT INFORMATION
  Report Type: 
  Country: None (occurrence: None)
  Receive Date: 20040301
  Receipt Date: 20040220
  Transmission Date: 20041129
  Serious: Yes (Hospitalization)
  Sender: FDA-Public Use
  Company Number: 2004200527FR

PATIENT
  Age: 68 Year
  Sex: Male
  Weight: 89 kg

DRUGS (3)
  1. EPIRUBICIN [Suspect]
     Indication: MYCOSIS FUNGOIDES
     Dosage: 100 MG, CYCLIC, MONTHLY, IV
     Route: 042
     Dates: start: 20030424, end: 20030723
  2. CYCLOPHOSPHAMIDE [Suspect]
     Indication: MYCOSIS FUNGOIDES
     Dosage: 1300 MG, CYCLIC,  MONTHLY, IV
     Route: 042
     Dates: start: 20030424, end: 20030806
  3. ONCOVIN [Suspect]
     Indication: MYCOSIS FUNGOIDES
     Dosage: 2 MG, CYCLIC, MONTHLY, IV
     Route: 042
     Dates: start: 20030424, end: 20030806

REACTIONS (3)
  - DYSPHONIA [None]
  - HYPOXIA [None]
  - LUNG INFILTRATION [None]
